FAERS Safety Report 8533084-X (Version None)
Quarter: 2012Q3

REPORT INFORMATION
  Report Type: 
  Country: None (occurrence: None)
  Receive Date: 20120724
  Receipt Date: 20120713
  Transmission Date: 20120928
  Serious: Yes (Death)
  Sender: FDA-Public Use
  Company Number: JP-BRISTOL-MYERS SQUIBB COMPANY-16771198

PATIENT
  Age: 62 Year
  Sex: Male

DRUGS (2)
  1. VEPESID [Suspect]
     Indication: SMALL CELL LUNG CANCER STAGE UNSPECIFIED
  2. CARBOPLATIN [Suspect]
     Indication: SMALL CELL LUNG CANCER STAGE UNSPECIFIED

REACTIONS (1)
  - INTERSTITIAL LUNG DISEASE [None]
